FAERS Safety Report 16155443 (Version 1)
Quarter: 2019Q2

REPORT INFORMATION
  Report Type: Spontaneous
  Country: US (occurrence: US)
  Receive Date: 20190403
  Receipt Date: 20190403
  Transmission Date: 20190711
  Serious: No
  Sender: FDA-Public Use
  Company Number: US-009507513-1903USA011141

PATIENT
  Age: 82 Year
  Sex: Female

DRUGS (2)
  1. PROVENTIL [Suspect]
     Active Substance: ALBUTEROL
     Indication: WHEEZING
     Dosage: 1 TO 2 PUFFS BY MOUTH EVERY 4 TO 6 HOURS
     Dates: start: 20190319
  2. PROVENTIL [Suspect]
     Active Substance: ALBUTEROL
     Indication: SEASONAL ALLERGY

REACTIONS (6)
  - Poor quality device used [Unknown]
  - Inappropriate schedule of product administration [Unknown]
  - Product quality issue [Unknown]
  - Incorrect dose administered [Unknown]
  - No adverse event [Unknown]
  - Off label use [Unknown]

NARRATIVE: CASE EVENT DATE: 20190319
